FAERS Safety Report 4697897-7 (Version None)
Quarter: 2005Q2

REPORT INFORMATION
  Report Type: 
  Country: None (occurrence: None)
  Receive Date: 20050621
  Receipt Date: 20050608
  Transmission Date: 20051028
  Serious: Yes (Other)
  Sender: FDA-Public Use
  Company Number: CN-2005-010172

PATIENT
  Age: 68 Year
  Sex: Male
  Weight: 70 kg

DRUGS (1)
  1. ULTRAVIST 300 [Suspect]
     Indication: CORONARY ANGIOPLASTY
     Dosage: 100 ML, 1 DOSE, INTRA-ARTERIAL
     Route: 013
     Dates: start: 20050604, end: 20050604

REACTIONS (6)
  - CHEST PAIN [None]
  - CONVULSION [None]
  - CYANOSIS [None]
  - DYSPNOEA [None]
  - HYPERHIDROSIS [None]
  - HYPOAESTHESIA [None]
